FAERS Safety Report 9681072 (Version 2)
Quarter: 2013Q4

REPORT INFORMATION
  Report Type: Report from Study
  Country: FR (occurrence: FR)
  Receive Date: 20131111
  Receipt Date: 20131120
  Transmission Date: 20140711
  Serious: Yes (Hospitalization)
  Sender: FDA-Public Use
  Company Number: FR-SA-2013SA113292

PATIENT
  Age: 73 Year
  Sex: Male

DRUGS (13)
  1. AFLIBERCEPT [Suspect]
     Indication: COLORECTAL CANCER METASTATIC
     Route: 041
     Dates: start: 20130521, end: 20130521
  2. AFLIBERCEPT [Suspect]
     Indication: COLORECTAL CANCER METASTATIC
     Route: 041
  3. 5 FU [Suspect]
     Indication: COLORECTAL CANCER METASTATIC
     Route: 040
     Dates: start: 20130521, end: 20130521
  4. 5 FU [Suspect]
     Indication: COLORECTAL CANCER METASTATIC
     Route: 041
     Dates: start: 20130521
  5. 5 FU [Suspect]
     Indication: COLORECTAL CANCER METASTATIC
     Route: 040
  6. 5 FU [Suspect]
     Indication: COLORECTAL CANCER METASTATIC
     Route: 041
  7. IRINOTECAN [Suspect]
     Indication: COLORECTAL CANCER METASTATIC
     Route: 041
     Dates: start: 20130521, end: 20130521
  8. IRINOTECAN [Suspect]
     Indication: COLORECTAL CANCER METASTATIC
     Route: 041
  9. LEUCOVORIN [Suspect]
     Indication: COLORECTAL CANCER METASTATIC
     Route: 041
     Dates: start: 20130521, end: 20130521
  10. LEUCOVORIN [Suspect]
     Indication: COLORECTAL CANCER METASTATIC
     Route: 041
  11. LOPERAMIDE [Concomitant]
     Dates: start: 20130601
  12. BETA BLOCKING AGENTS [Concomitant]
     Dates: start: 1995
  13. IMODIUM [Concomitant]
     Dates: start: 20130709

REACTIONS (1)
  - Infection [Recovered/Resolved]
